FAERS Safety Report 7234680-2 (Version None)
Quarter: 2011Q1

REPORT INFORMATION
  Report Type: 
  Country: None (occurrence: None)
  Receive Date: 20110120
  Receipt Date: 20110113
  Transmission Date: 20110831
  Serious: No
  Sender: FDA-Public Use
  Company Number: US-BIOGENIDEC-2011BI001944

PATIENT
  Age: 44 Year
  Sex: Female

DRUGS (1)
  1. TYSABRI [Suspect]
     Indication: MULTIPLE SCLEROSIS
     Route: 042
     Dates: start: 20070110

REACTIONS (5)
  - HYPOAESTHESIA [None]
  - FATIGUE [None]
  - GAIT DISTURBANCE [None]
  - MUSCULOSKELETAL PAIN [None]
  - ARTHRALGIA [None]
